FAERS Safety Report 10740812 (Version 4)
Quarter: 2016Q4

REPORT INFORMATION
  Report Type: Spontaneous
  Country: US (occurrence: US)
  Receive Date: 20150127
  Receipt Date: 20161115
  Transmission Date: 20170206
  Serious: No
  Sender: FDA-Public Use
  Company Number: US-PFIZER INC-2015029537

PATIENT
  Age: 73 Year
  Sex: Female

DRUGS (12)
  1. BYSTOLIC [Suspect]
     Active Substance: NEBIVOLOL HYDROCHLORIDE
     Dosage: UNK
  2. VALIUM [Suspect]
     Active Substance: DIAZEPAM
     Dosage: UNK
  3. PROCARDIA [Suspect]
     Active Substance: NIFEDIPINE
     Dosage: UNK
  4. ADALAT [Suspect]
     Active Substance: NIFEDIPINE
     Dosage: UNK
  5. ZIAC [Suspect]
     Active Substance: BISOPROLOL FUMARATE\HYDROCHLOROTHIAZIDE
     Dosage: UNK
  6. MOBIC [Suspect]
     Active Substance: MELOXICAM
     Dosage: UNK
  7. INDERAL [Suspect]
     Active Substance: PROPRANOLOL HYDROCHLORIDE
     Dosage: UNK
  8. AMOXICILLIN. [Suspect]
     Active Substance: AMOXICILLIN
     Dosage: UNK
  9. CODEINE [Suspect]
     Active Substance: CODEINE
     Dosage: UNK
  10. XARELTO [Suspect]
     Active Substance: RIVAROXABAN
     Dosage: UNK
  11. ATENOLOL. [Suspect]
     Active Substance: ATENOLOL
     Dosage: UNK
  12. CLONIDINE. [Suspect]
     Active Substance: CLONIDINE
     Dosage: UNK

REACTIONS (1)
  - Drug hypersensitivity [Unknown]
